FAERS Safety Report 6915431-5 (Version None)
Quarter: 2010Q3

REPORT INFORMATION
  Report Type: 
  Country: None (occurrence: None)
  Receive Date: 20100806
  Receipt Date: 20100806
  Transmission Date: 20110219
  Serious: No
  Sender: FDA-Public Use
  Company Number: None

PATIENT
  Sex: Female
  Weight: 64 kg

DRUGS (3)
  1. CYTARABINE [Suspect]
     Dosage: 9600 MG
  2. IDARUBICIN HCL [Suspect]
     Dosage: 57 MG
  3. PRAVASTATIN SODIUM [Suspect]
     Dosage: 10240 MG

REACTIONS (6)
  - CARDIO-RESPIRATORY ARREST [None]
  - FEBRILE NEUTROPENIA [None]
  - NERVOUS SYSTEM DISORDER [None]
  - PNEUMONIA ASPIRATION [None]
  - RESPIRATORY FAILURE [None]
  - VOMITING [None]
